FAERS Safety Report 9665421 (Version 1)
Quarter: 2013Q4

REPORT INFORMATION
  Report Type: Spontaneous
  Country: US (occurrence: None)
  Receive Date: 20131031
  Receipt Date: 20131031
  Transmission Date: 20140711
  Serious: Yes (Death)
  Sender: FDA-Public Use
  Company Number: None

PATIENT
  Sex: 0

DRUGS (13)
  1. OXYCOD/ACETAM [Suspect]
     Indication: PROCEDURAL PAIN
     Dosage: 1-2 TABS EVERY 6 HRS
     Dates: start: 20130823, end: 20130827
  2. AMLODIPINE [Concomitant]
  3. OXYCODONE/ACETAMINOPHEN [Concomitant]
  4. XARELTO [Concomitant]
  5. RIVAROXABAN [Concomitant]
  6. ACETAMINOPHEN\HYDROCODONE [Concomitant]
  7. GABAPENTIN [Concomitant]
  8. VITAMIN C [Concomitant]
  9. VITAMIN D [Concomitant]
  10. CALCIUM [Concomitant]
  11. B 12 [Concomitant]
  12. FOLIC ACID [Concomitant]
  13. B6 [Concomitant]

REACTIONS (2)
  - Restlessness [None]
  - Anxiety [None]
